FAERS Safety Report 9174476 (Version 1)
Quarter: 2013Q1

REPORT INFORMATION
  Report Type: Spontaneous
  Country: US (occurrence: None)
  Receive Date: 20130318
  Receipt Date: 20130318
  Transmission Date: 20140127
  Serious: Yes (Other)
  Sender: FDA-Public Use
  Company Number: 2013P1003016

PATIENT
  Age: 62 Year
  Sex: 0

DRUGS (1)
  1. CHLORPROMAZINE [Suspect]
     Indication: SCHIZOPHRENIA

REACTIONS (2)
  - Corneal deposits [None]
  - Ocular toxicity [None]
